FAERS Safety Report 4827581-8 (Version None)
Quarter: 2005Q4

REPORT INFORMATION
  Report Type: 
  Country: None (occurrence: None)
  Receive Date: 20051114
  Receipt Date: 20051104
  Transmission Date: 20060501
  Serious: Yes (Other)
  Sender: FDA-Public Use
  Company Number: JP-JNJFOC-20051101947

PATIENT
  Age: 6 Year
  Sex: Male

DRUGS (2)
  1. RISPERDAL [Suspect]
     Route: 048
  2. RISPERDAL [Suspect]
     Indication: AUTISM
     Dosage: (0.5 MG IN THE MORNING AND 1.25 MG AT NIGHT)
     Route: 048

REACTIONS (3)
  - COAGULATION FACTOR VII LEVEL DECREASED [None]
  - EPISTAXIS [None]
  - PROTHROMBIN TIME PROLONGED [None]
